FAERS Safety Report 12142154 (Version 1)
Quarter: 2016Q1

REPORT INFORMATION
  Report Type: Spontaneous
  Country: JP (occurrence: JP)
  Receive Date: 20160303
  Receipt Date: 20160303
  Transmission Date: 20160526
  Serious: Yes (Other)
  Sender: FDA-Public Use
  Company Number: JP-SA-2016SA040100

PATIENT
  Age: 71 Year
  Sex: Male
  Weight: 55.8 kg

DRUGS (22)
  1. DIGOXIN. [Concomitant]
     Active Substance: DIGOXIN
  2. TRICHLORMETHIAZIDE [Concomitant]
     Active Substance: TRICHLORMETHIAZIDE
  3. NOVORAPID [Concomitant]
     Active Substance: INSULIN ASPART
     Dosage: 26 UNITS BEFORE BREAKFAST, 18 UNITS BEFORE DINNER
     Dates: start: 201004
  4. APIDRA [Concomitant]
     Active Substance: INSULIN GLULISINE
     Dates: start: 2011
  5. LANTUS [Suspect]
     Active Substance: INSULIN GLARGINE
     Indication: TYPE 2 DIABETES MELLITUS
     Dosage: DOSE:20 UNIT(S)
     Route: 058
     Dates: start: 2011
  6. FUROSEMIDE. [Concomitant]
     Active Substance: FUROSEMIDE
  7. CARVEDILOL. [Concomitant]
     Active Substance: CARVEDILOL
  8. LIRAGLUTIDE [Concomitant]
     Active Substance: LIRAGLUTIDE
  9. LANTUS [Suspect]
     Active Substance: INSULIN GLARGINE
     Indication: TYPE 2 DIABETES MELLITUS
     Route: 058
     Dates: start: 2011
  10. ACARBOSE. [Concomitant]
     Active Substance: ACARBOSE
  11. ASPIRIN. [Concomitant]
     Active Substance: ASPIRIN
  12. LEVEMIR [Concomitant]
     Active Substance: INSULIN DETEMIR
     Dosage: DOSE:34 UNIT(S)
     Dates: start: 201006
  13. GLICLAZIDE [Concomitant]
     Active Substance: GLICLAZIDE
  14. ATORVASTATIN [Concomitant]
     Active Substance: ATORVASTATIN
  15. WARFARIN POTASSIUM [Concomitant]
     Active Substance: WARFARIN POTASSIUM
  16. NOVOLIN N [Concomitant]
     Active Substance: INSULIN HUMAN
  17. PROTAMINE HYDROCHLORIDE [Concomitant]
     Active Substance: PROTAMINE HYDROCHLORIDE
  18. HUMALOG MIX75/25 [Concomitant]
     Active Substance: INSULIN LISPRO
     Dosage: 24 UNITS BEFORE BREAKFAST, 16 UNITS BEFORE DINNER
     Dates: start: 201002
  19. PIMOBENDAN [Concomitant]
     Active Substance: PIMOBENDAN
  20. ETHYL ICOSAPENTATE [Concomitant]
     Active Substance: ICOSAPENT ETHYL
  21. SPIRONOLACTONE. [Concomitant]
     Active Substance: SPIRONOLACTONE
  22. ALLOPURINOL. [Concomitant]
     Active Substance: ALLOPURINOL

REACTIONS (5)
  - Rash [Recovered/Resolved with Sequelae]
  - Injection site erythema [Recovered/Resolved with Sequelae]
  - Type I hypersensitivity [Recovered/Resolved with Sequelae]
  - Drug hypersensitivity [Recovered/Resolved with Sequelae]
  - Sclerema [Not Recovered/Not Resolved]

NARRATIVE: CASE EVENT DATE: 2011
